FAERS Safety Report 4552180-5 (Version None)
Quarter: 2004Q4

REPORT INFORMATION
  Report Type: 
  Country: None (occurrence: None)
  Receive Date: 20041217
  Receipt Date: 20040824
  Transmission Date: 20050328
  Serious: No
  Sender: FDA-Public Use
  Company Number: 2004-BP-06143BP

PATIENT
  Age: 58 Year
  Sex: Female
  Weight: 65.8 kg

DRUGS (10)
  1. SPIRIVA [Suspect]
     Indication: CHRONIC OBSTRUCTIVE AIRWAYS DISEASE
     Dosage: 18 MCG (18 MCG),IH
     Dates: start: 20040716, end: 20040723
  2. OMEPRAZOLE [Concomitant]
  3. FOLIC ACID [Concomitant]
  4. CLARINEX [Concomitant]
  5. METOPROLOL TARTRATE [Concomitant]
  6. DOXYCYCLINE [Concomitant]
  7. TUSSIONEX (TUSSIONEX) [Concomitant]
  8. COUMADIN [Concomitant]
  9. ASPIRIN [Concomitant]
  10. VITAMINS (VITAMINS) [Concomitant]

REACTIONS (1)
  - OESOPHAGEAL DISORDER [None]
